FAERS Safety Report 22529349 (Version 1)
Quarter: 2023Q2

REPORT INFORMATION
  Report Type: Spontaneous
  Country: US (occurrence: US)
  Receive Date: 20230607
  Receipt Date: 20230607
  Transmission Date: 20230722
  Serious: Yes (Hospitalization)
  Sender: FDA-Public Use
  Company Number: US-AMGEN-USASP2023095464

PATIENT
  Age: 72 Year
  Sex: Female

DRUGS (21)
  1. REPATHA [Suspect]
     Active Substance: EVOLOCUMAB
     Indication: Product used for unknown indication
     Dosage: UNK
     Route: 065
  2. DUPIXENT [Suspect]
     Active Substance: DUPILUMAB
     Indication: Dermatitis atopic
     Dosage: 300 MILLIGRAM, Q2WK  (VIA PREFILLED SYRINGE)
     Route: 058
     Dates: start: 20190719
  3. DUPIXENT [Suspect]
     Active Substance: DUPILUMAB
     Dosage: 300 MILLIGRAM, Q2WK (VIA PREFILLED SYRINGE)
     Route: 058
     Dates: start: 20190719
  4. DUPIXENT [Suspect]
     Active Substance: DUPILUMAB
     Dosage: 300 MILLIGRAM PER 2 MILLILITER (VIA PREFILLED PEN)
     Route: 058
     Dates: start: 202211
  5. ASPIRIN [Concomitant]
     Active Substance: ASPIRIN
  6. BRILINTA [Concomitant]
     Active Substance: TICAGRELOR
  7. LEVOTHYROXINE [Concomitant]
     Active Substance: LEVOTHYROXINE
  8. LIDOCAINE [Concomitant]
     Active Substance: LIDOCAINE
  9. PRILOCAINE [Concomitant]
     Active Substance: PRILOCAINE
  10. ALPRAZOLAM [Concomitant]
     Active Substance: ALPRAZOLAM
  11. CYANOCOBALAMIN [Concomitant]
     Active Substance: CYANOCOBALAMIN
  12. FINASTERIDE [Concomitant]
     Active Substance: FINASTERIDE
  13. AMOXICILLIN [Concomitant]
     Active Substance: AMOXICILLIN
  14. BACITRACIN [Concomitant]
     Active Substance: BACITRACIN
  15. DUREZOL [Concomitant]
     Active Substance: DIFLUPREDNATE
  16. EPINEPHRINE [Concomitant]
     Active Substance: EPINEPHRINE
  17. MOXIFLOXACIN [Concomitant]
     Active Substance: MOXIFLOXACIN
  18. POLYMYXIN [Concomitant]
     Active Substance: POLYMYXIN
  19. PROLENSA [Concomitant]
     Active Substance: BROMFENAC SODIUM
  20. TACROLIMUS [Concomitant]
     Active Substance: TACROLIMUS
  21. BETAMETHASONE DIPROPIONATE AUGMENTED [Concomitant]
     Active Substance: BETAMETHASONE DIPROPIONATE

REACTIONS (4)
  - Myocardial infarction [Recovered/Resolved]
  - Alopecia [Not Recovered/Not Resolved]
  - Weight increased [Unknown]
  - Rash macular [Unknown]

NARRATIVE: CASE EVENT DATE: 20200111
